FAERS Safety Report 13126538 (Version 2)
Quarter: 2017Q2

REPORT INFORMATION
  Report Type: Spontaneous
  Country: US (occurrence: US)
  Receive Date: 20170118
  Receipt Date: 20170427
  Transmission Date: 20170830
  Serious: Yes (Hospitalization)
  Sender: FDA-Public Use
  Company Number: US-CELGENEUS-USA-2017011400

PATIENT
  Age: 68 Year
  Sex: Male
  Weight: 72.64 kg

DRUGS (7)
  1. REVLIMID [Suspect]
     Active Substance: LENALIDOMIDE
     Indication: MYELODYSPLASTIC SYNDROME
     Dosage: 10 MILLIGRAM
     Route: 048
     Dates: start: 20160629
  2. ENOXAPARIN [Concomitant]
     Active Substance: ENOXAPARIN
     Indication: KNEE ARTHROPLASTY
     Dosage: 60 MILLIGRAM
     Route: 058
     Dates: start: 201612, end: 201701
  3. REVLIMID [Suspect]
     Active Substance: LENALIDOMIDE
     Indication: CHRONIC MYELOMONOCYTIC LEUKAEMIA
  4. ASPIRIN. [Concomitant]
     Active Substance: ASPIRIN
     Indication: CARDIAC DISORDER
     Dosage: 81 MILLIGRAM
     Route: 048
     Dates: start: 201211
  5. TAMSULOSIN [Concomitant]
     Active Substance: TAMSULOSIN
     Indication: BENIGN PROSTATIC HYPERPLASIA
     Dosage: .4 MILLIGRAM
     Route: 048
     Dates: start: 201601
  6. IBUPROFEN. [Concomitant]
     Active Substance: IBUPROFEN
     Indication: PAIN
     Dosage: 800 MILLIGRAM
     Route: 048
     Dates: start: 201302
  7. OXYBUTYNIN [Concomitant]
     Active Substance: OXYBUTYNIN
     Indication: INCONTINENCE
     Dosage: 5 MILLIGRAM
     Route: 048
     Dates: start: 201611

REACTIONS (2)
  - Nephrolithiasis [Recovered/Resolved]
  - Knee deformity [Recovered/Resolved]

NARRATIVE: CASE EVENT DATE: 20161212
